FAERS Safety Report 5339527-7 (Version None)
Quarter: 2007Q2

REPORT INFORMATION
  Report Type: 
  Country: None (occurrence: None)
  Receive Date: 20070404
  Receipt Date: 20060228
  Transmission Date: 20071010
  Serious: Yes (Hospitalization)
  Sender: FDA-Public Use
  Company Number: 2006031019

PATIENT

DRUGS (1)
  1. GEODON [Suspect]
     Indication: ILL-DEFINED DISORDER

REACTIONS (1)
  - PYREXIA [None]
